FAERS Safety Report 8273019-0 (Version None)
Quarter: 2012Q2

REPORT INFORMATION
  Report Type: 
  Country: None (occurrence: None)
  Receive Date: 20120411
  Receipt Date: 20120404
  Transmission Date: 20120825
  Serious: No
  Sender: FDA-Public Use
  Company Number: US-PFIZER INC-2012086196

PATIENT
  Sex: Female

DRUGS (7)
  1. DURAGESIC-100 [Suspect]
     Dosage: UNK
  2. RIFAMPIN [Suspect]
     Dosage: UNK
  3. CUBICIN [Suspect]
     Dosage: UNK
  4. NEURONTIN [Suspect]
     Dosage: UNK
  5. CORTISONE ACETATE [Suspect]
     Dosage: UNK
  6. TETRACYCLINE HCL [Suspect]
     Dosage: UNK
  7. KEFLEX [Suspect]
     Dosage: UNK

REACTIONS (1)
  - DRUG HYPERSENSITIVITY [None]
